FAERS Safety Report 24332703 (Version 1)
Quarter: 2024Q3

REPORT INFORMATION
  Report Type: Spontaneous
  Country: US (occurrence: None)
  Receive Date: 20240917
  Receipt Date: 20240917
  Transmission Date: 20241017
  Serious: Yes (Hospitalization)
  Sender: Public
  Company Number: None

PATIENT
  Age: 49 Year
  Sex: Female

DRUGS (2)
  1. IMATINIB MESYLATE [Suspect]
     Active Substance: IMATINIB MESYLATE
     Indication: Chronic myeloid leukaemia
     Dosage: FREQUENCY : DAILY;?
  2. JAKAFI [Suspect]
     Active Substance: RUXOLITINIB

REACTIONS (6)
  - Night sweats [None]
  - Diverticulitis [None]
  - Fistula [None]
  - Tooth infection [None]
  - Fatigue [None]
  - Therapy cessation [None]
